FAERS Safety Report 18611068 (Version 2)
Quarter: 2021Q1

REPORT INFORMATION
  Report Type: Spontaneous
  Country: US (occurrence: US)
  Receive Date: 20201214
  Receipt Date: 20210112
  Transmission Date: 20210419
  Serious: Yes (Hospitalization, Other)
  Sender: FDA-Public Use
  Company Number: US-PFIZER INC-2020485574

PATIENT
  Age: 58 Year
  Sex: Female
  Weight: 113.4 kg

DRUGS (3)
  1. CELEXA [CELECOXIB] [Suspect]
     Active Substance: CELECOXIB
     Dosage: UNK
  2. EFFEXOR XR [Suspect]
     Active Substance: VENLAFAXINE HYDROCHLORIDE
     Dosage: UNK
  3. PAXIL [Suspect]
     Active Substance: PAROXETINE HYDROCHLORIDE
     Dosage: UNK

REACTIONS (4)
  - Suicidal behaviour [Unknown]
  - Cerebral disorder [Unknown]
  - Feeling abnormal [Unknown]
  - Drug ineffective [Unknown]
